FAERS Safety Report 6685047-7 (Version None)
Quarter: 2010Q2

REPORT INFORMATION
  Report Type: 
  Country: None (occurrence: None)
  Receive Date: 20100416
  Receipt Date: 20100414
  Transmission Date: 20101027
  Serious: Yes (Other)
  Sender: FDA-Public Use
  Company Number: A0832397A

PATIENT
  Sex: Female

DRUGS (2)
  1. TYKERB [Suspect]
     Dosage: 1250MG PER DAY
     Route: 048
     Dates: start: 20090826, end: 20100326
  2. XELODA [Suspect]
     Indication: BREAST CANCER

REACTIONS (2)
  - BREAST CANCER [None]
  - TINEA PEDIS [None]
